FAERS Safety Report 20895312 (Version 6)
Quarter: 2022Q4

REPORT INFORMATION
  Report Type: Report from Study
  Country: CA (occurrence: CA)
  Receive Date: 20220531
  Receipt Date: 20221021
  Transmission Date: 20230113
  Serious: Yes (Death, Hospitalization, Other)
  Sender: FDA-Public Use
  Company Number: CA-ABBVIE-22K-028-4415904-00

PATIENT
  Age: 77 Year
  Sex: Male

DRUGS (1)
  1. LUPRON DEPOT [Suspect]
     Active Substance: LEUPROLIDE ACETATE
     Indication: Prostate cancer
     Route: 030
     Dates: start: 20220123

REACTIONS (7)
  - Hypervolaemia [Fatal]
  - Haemoglobin decreased [Recovering/Resolving]
  - Dyspnoea [Recovered/Resolved]
  - Epistaxis [Unknown]
  - Condition aggravated [Unknown]
  - Dyspnoea [Unknown]
  - End stage renal disease [Fatal]

NARRATIVE: CASE EVENT DATE: 20220430
